FAERS Safety Report 10415016 (Version 2)
Quarter: 2014Q3

REPORT INFORMATION
  Report Type: Spontaneous
  Country: US (occurrence: US)
  Receive Date: 20140828
  Receipt Date: 20140912
  Transmission Date: 20150326
  Serious: Yes (Hospitalization)
  Sender: FDA-Public Use
  Company Number: US-SA-2014SA114578

PATIENT
  Age: 83 Year
  Sex: Female
  Weight: 76 kg

DRUGS (4)
  1. LANTUS [Suspect]
     Active Substance: INSULIN GLARGINE
     Indication: TYPE 2 DIABETES MELLITUS
     Dosage: FORM:VIAL DOSE:40 UNIT(S)
     Route: 065
     Dates: end: 20140812
  2. LANTUS [Suspect]
     Active Substance: INSULIN GLARGINE
     Indication: TYPE 2 DIABETES MELLITUS
     Dosage: FORM:VIAL DOSE:40 UNIT(S)
     Route: 065
     Dates: start: 20140801
  3. LANTUS [Suspect]
     Active Substance: INSULIN GLARGINE
     Indication: TYPE 2 DIABETES MELLITUS
     Dosage: FORM:VIAL DOSE:40 UNIT(S)
     Route: 065
     Dates: start: 20140801
  4. LANTUS [Suspect]
     Active Substance: INSULIN GLARGINE
     Indication: TYPE 2 DIABETES MELLITUS
     Dosage: FORM:VIAL DOSE:40 UNIT(S)
     Route: 065
     Dates: start: 20140801

REACTIONS (4)
  - Product odour abnormal [Unknown]
  - Drug dose omission [Unknown]
  - Blood sodium decreased [Unknown]
  - Rash [Recovering/Resolving]
